FAERS Safety Report 25375179 (Version 1)
Quarter: 2025Q2

REPORT INFORMATION
  Report Type: Spontaneous
  Country: US (occurrence: US)
  Receive Date: 20250529
  Receipt Date: 20250529
  Transmission Date: 20250717
  Serious: Yes (Death, Hospitalization, Other)
  Sender: Kenvue
  Company Number: US-KENVUE-20250509883

PATIENT

DRUGS (2)
  1. ACETAMINOPHEN [Suspect]
     Active Substance: ACETAMINOPHEN
     Indication: Product used for unknown indication
     Route: 048
  2. ACETAMINOPHEN [Suspect]
     Active Substance: ACETAMINOPHEN
     Indication: Accidental exposure to product

REACTIONS (7)
  - Acute hepatic failure [Fatal]
  - Liver injury [Fatal]
  - Completed suicide [Fatal]
  - Intentional overdose [Fatal]
  - Accidental overdose [Fatal]
  - Overdose [Fatal]
  - Coma [Fatal]
